FAERS Safety Report 8192110-0 (Version None)
Quarter: 2012Q1

REPORT INFORMATION
  Report Type: 
  Country: None (occurrence: None)
  Receive Date: 20120307
  Receipt Date: 20120305
  Transmission Date: 20120608
  Serious: Yes (Other)
  Sender: FDA-Public Use
  Company Number: NZ-PFIZER INC-2012057457

PATIENT
  Age: 80 Year
  Sex: Male

DRUGS (5)
  1. EFFEXOR XR [Suspect]
     Dosage: 37.5 MG, 1X/DAY
  2. EFFEXOR XR [Suspect]
     Dosage: 75 MG, 1X/DAY
  3. EFFEXOR XR [Suspect]
     Dosage: 150 MG, 1X/DAY
  4. WARFARIN [Concomitant]
     Dosage: UNK
  5. METOPROLOL [Concomitant]
     Dosage: UNK

REACTIONS (4)
  - INSOMNIA [None]
  - WEIGHT INCREASED [None]
  - DYSPNOEA [None]
  - HEART RATE IRREGULAR [None]
